FAERS Safety Report 9172296 (Version 1)
Quarter: 2013Q1

REPORT INFORMATION
  Report Type: Spontaneous
  Country: US (occurrence: US)
  Receive Date: 20130319
  Receipt Date: 20130319
  Transmission Date: 20140127
  Serious: No
  Sender: FDA-Public Use
  Company Number: US-BAYER-2013-033061

PATIENT
  Age: 49 Year
  Sex: Female

DRUGS (8)
  1. BETASERON [Suspect]
     Dosage: 1 ML, TIW
     Route: 058
  2. BENAZEPRIL [Concomitant]
  3. IRON [Concomitant]
  4. HYDROCHLOROTHIAZID [Concomitant]
  5. CLONIDINE [Concomitant]
  6. VITAMIN D [Concomitant]
  7. LEXAPRO [Concomitant]
  8. GABAPENTIN [Concomitant]

REACTIONS (9)
  - Injection site reaction [Unknown]
  - Menorrhagia [Unknown]
  - Anaemia [Unknown]
  - White blood cell count decreased [Unknown]
  - Hypoaesthesia [Unknown]
  - Paraesthesia [Unknown]
  - Feeling cold [Unknown]
  - Depression [Unknown]
  - Depressed mood [Unknown]
